FAERS Safety Report 9227812 (Version 4)
Quarter: 2013Q2

REPORT INFORMATION
  Report Type: Spontaneous
  Country: US (occurrence: US)
  Receive Date: 20130412
  Receipt Date: 20130620
  Transmission Date: 20140414
  Serious: No
  Sender: FDA-Public Use
  Company Number: US-009507513-1304USA005447

PATIENT
  Age: 16 Year
  Sex: Female
  Weight: 64.4 kg

DRUGS (2)
  1. IMPLANON [Suspect]
     Indication: CONTRACEPTION
     Dosage: 1 SINGLE ROD, 2ND IMPLANT
     Route: 059
     Dates: start: 20130321, end: 20130411
  2. IMPLANON [Suspect]
     Dosage: UNK
     Dates: start: 20130411

REACTIONS (6)
  - Implant site irritation [Unknown]
  - Implant site erythema [Unknown]
  - Implant site reaction [Unknown]
  - Pruritus [Unknown]
  - Device breakage [Recovered/Resolved]
  - Device dislocation [Recovered/Resolved]
